FAERS Safety Report 6160597-0 (Version None)
Quarter: 2009Q2

REPORT INFORMATION
  Report Type: 
  Country: None (occurrence: None)
  Receive Date: 20090416
  Receipt Date: 20090406
  Transmission Date: 20091009
  Serious: Yes (Hospitalization)
  Sender: FDA-Public Use
  Company Number: 2009S1003237

PATIENT
  Sex: Female

DRUGS (1)
  1. PHOSPHOSODA FLAVOR NOT SPECIFIED [Suspect]
     Indication: COLONOSCOPY
     Dosage: PO
     Dates: start: 20070509, end: 20070509

REACTIONS (4)
  - ANAEMIA [None]
  - DRUG TOXICITY [None]
  - HAEMODIALYSIS [None]
  - RENAL FAILURE ACUTE [None]
